FAERS Safety Report 13335258 (Version 1)
Quarter: 2017Q1

REPORT INFORMATION
  Report Type: Spontaneous
  Country: US (occurrence: US)
  Receive Date: 20170314
  Receipt Date: 20170314
  Transmission Date: 20170428
  Serious: No
  Sender: FDA-Public Use
  Company Number: US-GALDERMA-US16000534

PATIENT
  Age: 55 Year
  Sex: Female

DRUGS (1)
  1. TRI-LUMA [Suspect]
     Active Substance: FLUOCINOLONE ACETONIDE\HYDROQUINONE\TRETINOIN
     Indication: SKIN HYPERPIGMENTATION
     Route: 061
     Dates: start: 20151221, end: 20160124

REACTIONS (10)
  - Scar [Not Recovered/Not Resolved]
  - Skin injury [Not Recovered/Not Resolved]
  - Rash [Not Recovered/Not Resolved]
  - Emotional distress [Not Recovered/Not Resolved]
  - Intentional product misuse [Not Recovered/Not Resolved]
  - Pigmentation disorder [Not Recovered/Not Resolved]
  - Skin injury [Recovering/Resolving]
  - Skin hypopigmentation [Not Recovered/Not Resolved]
  - Skin hyperpigmentation [Not Recovered/Not Resolved]
  - Incorrect product storage [Not Recovered/Not Resolved]

NARRATIVE: CASE EVENT DATE: 20151221
